FAERS Safety Report 20308265 (Version 2)
Quarter: 2022Q1

REPORT INFORMATION
  Report Type: Spontaneous
  Country: RU (occurrence: RU)
  Receive Date: 20220107
  Receipt Date: 20220125
  Transmission Date: 20220423
  Serious: Yes (Other)
  Sender: FDA-Public Use
  Company Number: RU-SA-2021SA434200

PATIENT
  Age: 47 Year
  Sex: Female
  Weight: 73 kg

DRUGS (10)
  1. SOLIQUA 100/33 [Suspect]
     Active Substance: INSULIN GLARGINE\LIXISENATIDE
     Indication: Type 2 diabetes mellitus
     Dosage: 10 IU, QD (1 INJECTION PER DAY)
     Route: 058
     Dates: start: 20211219, end: 202112
  2. INDAPAMIDE [Concomitant]
     Active Substance: INDAPAMIDE
     Indication: Hypertension
     Dosage: 2.5 MG, QD
  3. BISOPROLOL [Concomitant]
     Active Substance: BISOPROLOL
     Indication: Hypertension
     Dosage: 2.5 MG, QD
  4. ENALAPRIL [Concomitant]
     Active Substance: ENALAPRIL
     Indication: Hypertension
     Dosage: 10 MG, QD
  5. CEFTRIAXONE [Concomitant]
     Active Substance: CEFTRIAXONE
     Dosage: 1 G, BID
     Dates: start: 20211209, end: 20211213
  6. CHLOROPYRAMINE [Concomitant]
     Active Substance: CHLOROPYRAMINE
     Dosage: 20 MG
     Route: 030
     Dates: start: 20211215, end: 20211220
  7. .ALPHA.-LIPOIC ACID [Concomitant]
     Active Substance: .ALPHA.-LIPOIC ACID
     Dosage: 600 MG
     Route: 041
     Dates: start: 20211208
  8. ETHYLMETHYLHYDROXYPYRIDINE SUCCINATE [Concomitant]
     Dosage: 500 MG, BID
     Route: 041
     Dates: start: 20211208
  9. SODIUM ACETATE;SODIUM CHLORIDE [Concomitant]
     Dosage: 400 ML
     Route: 041
     Dates: start: 20211208
  10. CHOLINE ALFOSCERATE [Concomitant]
     Active Substance: CHOLINE ALFOSCERATE
     Dosage: 1000 MG
     Route: 041
     Dates: start: 20211208

REACTIONS (4)
  - Angioedema [Recovered/Resolved]
  - Rash macular [Recovered/Resolved]
  - Swelling face [Recovered/Resolved]
  - Off label use [Unknown]

NARRATIVE: CASE EVENT DATE: 20211219
